FAERS Safety Report 7310758-X (Version None)
Quarter: 2011Q1

REPORT INFORMATION
  Report Type: 
  Country: None (occurrence: None)
  Receive Date: 20110224
  Receipt Date: 20110215
  Transmission Date: 20110831
  Serious: Yes (Life-Threatening, Other)
  Sender: FDA-Public Use
  Company Number: PHHY2011JP13932

PATIENT
  Sex: Male
  Weight: 65 kg

DRUGS (15)
  1. TANATRIL [Concomitant]
     Indication: HYPERTENSION
     Dosage: 2.5MG, 5MG
     Route: 048
     Dates: start: 20091102, end: 20100808
  2. OLMETEC [Concomitant]
     Indication: HYPERTENSION
     Dosage: 20 MG, UNK
     Route: 048
     Dates: start: 20061002, end: 20071220
  3. EPLERENONE [Concomitant]
     Indication: HYPERTENSION
     Dosage: 12.5 MG, UNK
     Route: 048
     Dates: start: 20091102
  4. FLUITRAN [Concomitant]
     Dosage: 2 MG, UNK
     Route: 048
     Dates: end: 20091101
  5. LENDORMIN [Concomitant]
     Dosage: 0.25 MG, UNK
     Route: 048
  6. CRESTOR [Concomitant]
     Dosage: 5 MG, UNK
     Route: 048
     Dates: start: 20091102
  7. VALSARTAN [Suspect]
     Dosage: 80 MG, QD
     Route: 048
     Dates: start: 20071221, end: 20091030
  8. LIPITOR [Concomitant]
     Dosage: 10 MG, UNK
     Route: 048
     Dates: start: 20061002
  9. PLAVIX [Concomitant]
     Dosage: 75 MG, UNK
     Route: 048
  10. SIGMART [Concomitant]
     Dosage: 15 MG, UNK
     Route: 048
     Dates: start: 20091109
  11. ARTIST [Concomitant]
     Indication: HYPERTENSION
     Dosage: 20 MG
     Dates: start: 20061002
  12. PENFILL R [Concomitant]
     Dosage: 40 IU, UNK
     Route: 058
     Dates: start: 20061002
  13. ASPIRIN [Concomitant]
     Dosage: 100 MG, UNK
     Route: 048
     Dates: start: 20061002
  14. LOCHOL [Concomitant]
     Dosage: 10 MG, UNK
     Route: 048
     Dates: end: 20091101
  15. AMARYL [Concomitant]
     Dosage: 1 MG, UNK
     Route: 048
     Dates: start: 20091113

REACTIONS (8)
  - GLUCOSE URINE PRESENT [None]
  - GLYCOSYLATED HAEMOGLOBIN INCREASED [None]
  - BLOOD PRESSURE DECREASED [None]
  - BLOOD PRESSURE SYSTOLIC INCREASED [None]
  - BLOOD TRIGLYCERIDES INCREASED [None]
  - BLOOD CREATININE INCREASED [None]
  - ACUTE MYOCARDIAL INFARCTION [None]
  - DIABETES MELLITUS [None]
